FAERS Safety Report 14166044 (Version 1)
Quarter: 2017Q4

REPORT INFORMATION
  Report Type: Spontaneous
  Country: US (occurrence: None)
  Receive Date: 20171106
  Receipt Date: 20171106
  Transmission Date: 20180321
  Serious: No
  Sender: FDA-Public Use
  Company Number: None

PATIENT
  Sex: Female

DRUGS (1)
  1. PROGESTERONE IN SESAME OIL 50MG/ML APP PHARMACEUTICALS [Suspect]
     Active Substance: PROGESTERONE
     Indication: INFERTILITY
     Route: 030
     Dates: start: 20171018, end: 20171031

REACTIONS (2)
  - Injection site urticaria [None]
  - Product formulation issue [None]

NARRATIVE: CASE EVENT DATE: 20171031
